FAERS Safety Report 7578443-7 (Version None)
Quarter: 2011Q2

REPORT INFORMATION
  Report Type: 
  Country: None (occurrence: None)
  Receive Date: 20110622
  Receipt Date: 20110620
  Transmission Date: 20111010
  Serious: Yes (Death, Hospitalization)
  Sender: FDA-Public Use
  Company Number: NAP-11-09

PATIENT
  Age: 58 Year
  Sex: Male

DRUGS (3)
  1. LITHIUM CARBONATE [Concomitant]
  2. OLANZAPINE [Concomitant]
  3. NAPROXEN [Suspect]
     Indication: OSTEOARTHRITIS

REACTIONS (4)
  - LEUKOCYTOCLASTIC VASCULITIS [None]
  - RESPIRATORY FAILURE [None]
  - PNEUMONIA [None]
  - DUODENAL ULCER HAEMORRHAGE [None]
